FAERS Safety Report 16005768 (Version 2)
Quarter: 2019Q2

REPORT INFORMATION
  Report Type: Spontaneous
  Country: US (occurrence: US)
  Receive Date: 20190226
  Receipt Date: 20190409
  Transmission Date: 20190711
  Serious: No
  Sender: FDA-Public Use
  Company Number: US-BAYER-2019-038772

PATIENT
  Age: 93 Year
  Sex: Male
  Weight: 66 kg

DRUGS (3)
  1. MIRALAX [Suspect]
     Active Substance: POLYETHYLENE GLYCOL 3350
     Indication: GASTROINTESTINAL DISORDER
     Dosage: 17 G, QD
     Route: 048
     Dates: start: 20190218, end: 20190220
  2. PROSTATE COMPLEX [Concomitant]
  3. MIRALAX [Suspect]
     Active Substance: POLYETHYLENE GLYCOL 3350
     Indication: GASTROINTESTINAL DISORDER
     Dosage: UNK
     Dates: start: 2017, end: 2017

REACTIONS (7)
  - Product solubility abnormal [Recovered/Resolved]
  - Product physical consistency issue [None]
  - Drug ineffective for unapproved indication [Unknown]
  - Product taste abnormal [None]
  - Abdominal distension [Unknown]
  - Product use in unapproved indication [Recovered/Resolved]
  - Poor quality product administered [Unknown]

NARRATIVE: CASE EVENT DATE: 2017
